FAERS Safety Report 5510172-3 (Version None)
Quarter: 2007Q4

REPORT INFORMATION
  Report Type: 
  Country: None (occurrence: None)
  Receive Date: 20071108
  Receipt Date: 20071030
  Transmission Date: 20080405
  Serious: Yes (Other)
  Sender: FDA-Public Use
  Company Number: AT-ABBOTT-07P-009-0422741-00

PATIENT
  Age: 28 Year
  Sex: Male

DRUGS (8)
  1. DEPAKINE CHRONO RETARD TABLETS [Suspect]
     Indication: DRUG USE FOR UNKNOWN INDICATION
     Route: 048
     Dates: start: 20070510, end: 20070521
  2. DIAZEPAM [Concomitant]
     Indication: DRUG USE FOR UNKNOWN INDICATION
     Route: 048
     Dates: start: 20070407, end: 20070521
  3. LANOLEPT [Concomitant]
     Indication: DRUG USE FOR UNKNOWN INDICATION
     Route: 048
     Dates: start: 20070420, end: 20070520
  4. LANOLEPT [Concomitant]
     Route: 048
     Dates: start: 20070521, end: 20070521
  5. LANOLEPT [Concomitant]
     Route: 048
     Dates: start: 20070522
  6. AMISULPRIDE [Concomitant]
     Indication: DRUG USE FOR UNKNOWN INDICATION
     Route: 048
     Dates: start: 20070420, end: 20070520
  7. AMISULPRIDE [Concomitant]
     Route: 048
     Dates: start: 20070521, end: 20070521
  8. AMISULPRIDE [Concomitant]
     Route: 048
     Dates: start: 20070522

REACTIONS (2)
  - BIPOLAR DISORDER [None]
  - DRUG WITHDRAWAL SYNDROME [None]
